FAERS Safety Report 24943356 (Version 1)
Quarter: 2025Q1

REPORT INFORMATION
  Report Type: Spontaneous
  Country: US (occurrence: None)
  Receive Date: 20250207
  Receipt Date: 20250207
  Transmission Date: 20250408
  Serious: No
  Sender: FDA-CTU
  Company Number: None

PATIENT

DRUGS (1)
  1. NUCALA [Suspect]
     Active Substance: MEPOLIZUMAB

REACTIONS (13)
  - Therapy interrupted [None]
  - Asthma [None]
  - Asthma [None]
  - Depression [None]
  - Decreased interest [None]
  - Insomnia [None]
  - Sleep disorder [None]
  - Fatigue [None]
  - Disturbance in attention [None]
  - Hyperphagia [None]
  - Restlessness [None]
  - Morbid thoughts [None]
  - Diverticulitis [None]
